FAERS Safety Report 19287430 (Version 1)
Quarter: 2021Q2

REPORT INFORMATION
  Report Type: Spontaneous
  Country: US (occurrence: US)
  Receive Date: 20210522
  Receipt Date: 20210522
  Transmission Date: 20210717
  Serious: No
  Sender: FDA-Public Use
  Company Number: US-ORGANON-O2105USA000501

PATIENT
  Sex: Female

DRUGS (11)
  1. SINEMET CR [Suspect]
     Active Substance: CARBIDOPA\LEVODOPA
     Indication: PARKINSON^S DISEASE
     Dosage: UNK
     Route: 048
  2. ROPINIROLE. [Suspect]
     Active Substance: ROPINIROLE
     Dosage: UNK
  3. BENEFIBER [Suspect]
     Active Substance: STARCH, WHEAT
     Dosage: UNK
  4. VITAMIN D3 [Suspect]
     Active Substance: CHOLECALCIFEROL
     Dosage: UNK
  5. MELATONIN [Suspect]
     Active Substance: MELATONIN
     Dosage: UNK
  6. CLONAZEPAM. [Suspect]
     Active Substance: CLONAZEPAM
     Dosage: UNK
  7. GOCOVRI [Suspect]
     Active Substance: AMANTADINE
     Indication: DYSKINESIA
     Dosage: 274 MILLIGRAM, HS (REPORTED AS ^137 MG AT 274 MG, 1X/DAY NIGHTLY AT BEDTIME^)
     Route: 048
     Dates: start: 20210325
  8. PRILOSEC [Suspect]
     Active Substance: OMEPRAZOLE MAGNESIUM
     Dosage: UNK
  9. SINEMET [Suspect]
     Active Substance: CARBIDOPA\LEVODOPA
     Indication: PARKINSON^S DISEASE
     Dosage: UNK
     Route: 048
  10. ROPINIROLE [ROPINIROLE HYDROCHLORIDE] [Suspect]
     Active Substance: ROPINIROLE HYDROCHLORIDE
     Dosage: UNK
  11. XADAGO [Suspect]
     Active Substance: SAFINAMIDE MESYLATE
     Dosage: UNK

REACTIONS (1)
  - Constipation [Not Recovered/Not Resolved]

NARRATIVE: CASE EVENT DATE: 2021
